FAERS Safety Report 6943602-0 (Version None)
Quarter: 2010Q3

REPORT INFORMATION
  Report Type: 
  Country: None (occurrence: None)
  Receive Date: 20100826
  Receipt Date: 20100817
  Transmission Date: 20110219
  Serious: Yes (Death, Hospitalization)
  Sender: FDA-Public Use
  Company Number: NL-BAXTER-2010BH021879

PATIENT
  Age: 61 Year
  Sex: Male

DRUGS (7)
  1. CYCLOPHOSPHAMIDE [Suspect]
     Indication: HODGKIN'S DISEASE
     Dosage: GEREDUCEERDE DOSIS
     Route: 042
     Dates: start: 20100628, end: 20100628
  2. METHYLPREDNISOLONE [Suspect]
     Indication: HODGKIN'S DISEASE
     Dosage: DAG 1-14 VAN DE CYCLUS. 7 DAGEN GEBRUIKT DEZE CYCLUS, REDEN ONBEKEND.
     Route: 048
     Dates: start: 20100628, end: 20100704
  3. BLEOMYCIN GENERIC [Suspect]
     Indication: HODGKIN'S DISEASE
     Route: 042
     Dates: start: 20100705, end: 20100705
  4. VINCRISTINE SULFATE [Suspect]
     Indication: HODGKIN'S DISEASE
     Dosage: VROEGTIJDIG GESTOPT, OP 14 JUNI 2010 (CYCLUS 4), REDEN ONBEKEND.
     Route: 042
     Dates: end: 20100614
  5. DOXORUBICIN HCL [Suspect]
     Indication: HODGKIN'S DISEASE
     Dosage: GEREDUCEERDE DOSIS
     Route: 042
     Dates: start: 20100628, end: 20100628
  6. ETOPOSIDE [Suspect]
     Indication: HODGKIN'S DISEASE
     Dosage: DAG 1-3. GEREDUCEERDE DOSIS
     Route: 042
     Dates: start: 20100628, end: 20100630
  7. PROCARBAZINE [Suspect]
     Indication: HODGKIN'S DISEASE
     Dosage: DAG 1-7.
     Route: 048
     Dates: start: 20100628, end: 20100704

REACTIONS (3)
  - BRONCHOPULMONARY ASPERGILLOSIS [None]
  - MULTI-ORGAN FAILURE [None]
  - SEPTIC SHOCK [None]
